FAERS Safety Report 23820527 (Version 1)
Quarter: 2024Q2

REPORT INFORMATION
  Report Type: Spontaneous
  Country: IT (occurrence: IT)
  Receive Date: 20240506
  Receipt Date: 20240506
  Transmission Date: 20240716
  Serious: Yes (Other)
  Sender: FDA-Public Use
  Company Number: None

PATIENT
  Age: 83 Year
  Sex: Female

DRUGS (9)
  1. EYLEA [Suspect]
     Active Substance: AFLIBERCEPT
     Indication: Choroidal neovascularisation
     Dosage: 1 DF,SOLUTION FOR INJECTION , 40MG/ML
     Dates: start: 20190304, end: 20190304
  2. EYLEA [Suspect]
     Active Substance: AFLIBERCEPT
     Dosage: 1 DF,SOLUTION FOR INJECTION , 40MG/ML
     Dates: start: 20190406, end: 20190406
  3. EYLEA [Suspect]
     Active Substance: AFLIBERCEPT
     Dosage: 1 DF,SOLUTION FOR INJECTION , 40MG/ML
     Dates: start: 20190508, end: 20190508
  4. EYLEA [Suspect]
     Active Substance: AFLIBERCEPT
     Dosage: 1 DF, SOLUTION FOR INJECTION , 40MG/ML
     Dates: start: 20191007, end: 20191007
  5. EYLEA [Suspect]
     Active Substance: AFLIBERCEPT
     Dosage: 1 DF, SOLUTION FOR INJECTION , 40MG/ML
     Dates: start: 20200207, end: 20200207
  6. EYLEA [Suspect]
     Active Substance: AFLIBERCEPT
     Dosage: 1 DF,SOLUTION FOR INJECTION , 40MG/ML
     Dates: start: 20200616, end: 20200616
  7. EYLEA [Suspect]
     Active Substance: AFLIBERCEPT
     Dosage: 1 DF,SOLUTION FOR INJECTION , 40MG/ML
     Dates: start: 20230321, end: 20230321
  8. EYLEA [Suspect]
     Active Substance: AFLIBERCEPT
     Dosage: 1 DF,SOLUTION FOR INJECTION , 40MG/ML
     Dates: start: 20230718, end: 20230718
  9. EYLEA [Suspect]
     Active Substance: AFLIBERCEPT
     Dosage: 1 DF,SOLUTION FOR INJECTION , 40MG/ML
     Dates: start: 20231120, end: 20231120

REACTIONS (3)
  - Subretinal fluid [Not Recovered/Not Resolved]
  - Condition aggravated [Not Recovered/Not Resolved]
  - Therapeutic product effect decreased [Not Recovered/Not Resolved]

NARRATIVE: CASE EVENT DATE: 20231219
